FAERS Safety Report 23747510 (Version 1)
Quarter: 2024Q2

REPORT INFORMATION
  Report Type: Spontaneous
  Country: US (occurrence: None)
  Receive Date: 20240415
  Receipt Date: 20240415
  Transmission Date: 20240716
  Serious: No
  Sender: FDA-Public Use
  Company Number: None

PATIENT
  Sex: Male

DRUGS (1)
  1. DISOPYRAMIDE [Suspect]
     Active Substance: DISOPYRAMIDE

REACTIONS (3)
  - Wrong product administered [None]
  - Blindness [None]
  - Product dispensing error [None]
